FAERS Safety Report 6781633-4 (Version None)
Quarter: 2010Q2

REPORT INFORMATION
  Report Type: 
  Country: None (occurrence: None)
  Receive Date: 20100621
  Receipt Date: 20100609
  Transmission Date: 20101027
  Serious: Yes (Other)
  Sender: FDA-Public Use
  Company Number: US-BAYER-201015212NA

PATIENT
  Age: 39 Year
  Sex: Male
  Weight: 81 kg

DRUGS (57)
  1. MAGNEVIST [Suspect]
     Indication: NUCLEAR MAGNETIC RESONANCE IMAGING BRAIN
     Dates: start: 20020917, end: 20020917
  2. MAGNEVIST [Suspect]
     Dates: start: 20030505, end: 20030505
  3. MAGNEVIST [Suspect]
     Dates: start: 20040329, end: 20040329
  4. MAGNEVIST [Suspect]
     Dates: start: 20050929, end: 20050929
  5. MAGNEVIST [Suspect]
     Dates: start: 20060421, end: 20060421
  6. MAGNEVIST [Suspect]
     Dates: start: 20070131, end: 20070131
  7. MAGNEVIST [Suspect]
     Dates: start: 20070627, end: 20070627
  8. MAGNEVIST [Suspect]
     Dates: start: 20061114, end: 20061114
  9. MAGNEVIST [Suspect]
     Dates: start: 20070426, end: 20070426
  10. MAGNEVIST [Suspect]
     Dates: start: 20040804, end: 20040804
  11. MAGNEVIST [Suspect]
     Dates: start: 20050324, end: 20050324
  12. MAGNEVIST [Suspect]
     Dates: start: 20051026, end: 20051026
  13. MAGNEVIST [Suspect]
     Dates: start: 20060208, end: 20060208
  14. MAGNEVIST [Suspect]
     Dates: start: 20060914, end: 20060914
  15. MAGNEVIST [Suspect]
     Dates: start: 20070807, end: 20070807
  16. MAGNEVIST [Suspect]
     Dates: start: 20060930, end: 20060930
  17. MAGNEVIST [Suspect]
     Dates: start: 20060202, end: 20060202
  18. MAGNEVIST [Suspect]
     Dates: start: 20040806, end: 20040806
  19. UNSPECIFIED GADOLINIUM [Suspect]
     Indication: NUCLEAR MAGNETIC RESONANCE IMAGING BRAIN
     Dates: start: 20040212, end: 20040212
  20. UNSPECIFIED GADOLINIUM [Suspect]
     Dates: start: 20030708, end: 20030708
  21. UNSPECIFIED GADOLINIUM [Suspect]
     Dates: start: 20030828, end: 20030828
  22. UNSPECIFIED GADOLINIUM [Suspect]
     Dates: start: 20030312, end: 20030312
  23. UNSPECIFIED GADOLINIUM [Suspect]
     Dates: start: 20030115, end: 20030115
  24. VENOFER [Concomitant]
  25. EPOGEN [Concomitant]
  26. PORK INSULIN [Concomitant]
  27. DIOVAN [Concomitant]
  28. CLONIDINE HCL [Concomitant]
  29. HYDROMORPHONE HCL [Concomitant]
  30. LABATALOL HCL [Concomitant]
  31. LASIX [Concomitant]
  32. KEPPRA [Concomitant]
  33. NEPHRO-VITE [Concomitant]
  34. NEXIUM [Concomitant]
  35. NORVASC [Concomitant]
  36. RENAGEL [Concomitant]
     Dosage: TOTAL DAILY DOSE: 2400 MG
     Route: 048
  37. OXYCONTIN [Concomitant]
  38. OXYFAST [Concomitant]
  39. REGLAN [Concomitant]
  40. TRAZODONE HCL [Concomitant]
  41. VALIUM [Concomitant]
  42. SENSIPAR [Concomitant]
  43. REGLAN [Concomitant]
     Dosage: 10 MG TID
  44. METHADONE [Concomitant]
  45. DILAUDID [Concomitant]
  46. NORTRIPTYLINE [Concomitant]
  47. MARINOL [Concomitant]
  48. PREDNISONE [Concomitant]
     Dosage: 10 MG DAILY
  49. NEURONTIN [Concomitant]
  50. PROTONIX [Concomitant]
  51. ALTACE [Concomitant]
  52. MARINOL [Concomitant]
  53. DECADRON [Concomitant]
  54. NARCAN [Concomitant]
  55. AVELOX [Concomitant]
  56. PHOSLO [Concomitant]
  57. ZEMPLAR [Concomitant]

REACTIONS (19)
  - ARTHRALGIA [None]
  - ASTHENIA [None]
  - CONTUSION [None]
  - ECCHYMOSIS [None]
  - GENERALISED OEDEMA [None]
  - MOBILITY DECREASED [None]
  - NEPHROGENIC SYSTEMIC FIBROSIS [None]
  - OEDEMA PERIPHERAL [None]
  - PAIN [None]
  - PARAESTHESIA [None]
  - PETECHIAE [None]
  - PIGMENTATION DISORDER [None]
  - PRURITUS [None]
  - PURPURA [None]
  - RASH [None]
  - RASH MACULAR [None]
  - SKIN HYPERPIGMENTATION [None]
  - SKIN PLAQUE [None]
  - SKIN ULCER HAEMORRHAGE [None]
